FAERS Safety Report 4412933-0 (Version None)
Quarter: 2004Q3

REPORT INFORMATION
  Report Type: 
  Country: None (occurrence: None)
  Receive Date: 20040728
  Receipt Date: 20040706
  Transmission Date: 20050211
  Serious: Yes (Hospitalization)
  Sender: FDA-Public Use
  Company Number: M2004.0725

PATIENT
  Age: 82 Year
  Sex: Female
  Weight: 65.7716 kg

DRUGS (2)
  1. METFORMIN 500 MG  TABLET, SANDOZ MANUFACTURER [Concomitant]
     Indication: DIABETES MELLITUS
     Dosage: 500 MG , BID
     Dates: start: 20031001
  2. METFORMIN 500MG TABLET, SANDOZ MANUFACTURER [Suspect]

REACTIONS (4)
  - BRADYCARDIA [None]
  - DIARRHOEA [None]
  - LOSS OF CONSCIOUSNESS [None]
  - VOMITING [None]
